FAERS Safety Report 6501081-1 (Version None)
Quarter: 2009Q4

REPORT INFORMATION
  Report Type: 
  Country: None (occurrence: None)
  Receive Date: 20091216
  Receipt Date: 20090701
  Transmission Date: 20100525
  Serious: No
  Sender: FDA-Public Use
  Company Number: A0795598A

PATIENT
  Age: 61 Year
  Sex: Female

DRUGS (1)
  1. COMMIT [Suspect]
     Indication: SMOKING CESSATION THERAPY
     Route: 002

REACTIONS (6)
  - CHEST PAIN [None]
  - DYSPEPSIA [None]
  - PAIN [None]
  - SALIVARY HYPERSECRETION [None]
  - SENSATION OF FOREIGN BODY [None]
  - THROAT IRRITATION [None]
